FAERS Safety Report 4608333-0 (Version None)
Quarter: 2005Q2

REPORT INFORMATION
  Report Type: 
  Country: None (occurrence: None)
  Receive Date: 20050301
  Receipt Date: 20040528
  Transmission Date: 20051028
  Serious: Yes (Other)
  Sender: FDA-Public Use
  Company Number: BDI-006183

PATIENT
  Age: 55 Year
  Sex: Female

DRUGS (2)
  1. ISOVUE-300 [Suspect]
     Indication: COMPUTERISED TOMOGRAM THORAX
     Dosage: 115 ML ONCE IV
     Route: 042
     Dates: start: 20040527, end: 20040527
  2. ISOVUE-300 [Suspect]
     Indication: LUNG NEOPLASM
     Dosage: 115 ML ONCE IV
     Route: 042
     Dates: start: 20040527, end: 20040527

REACTIONS (1)
  - ANAPHYLACTIC REACTION [None]
